FAERS Safety Report 9775918 (Version 3)
Quarter: 2014Q3

REPORT INFORMATION
  Report Type: Spontaneous
  Country: US (occurrence: US)
  Receive Date: 20131220
  Receipt Date: 20140808
  Transmission Date: 20150326
  Serious: No
  Sender: FDA-Public Use
  Company Number: US-PFIZER INC-2013364240

PATIENT
  Age: 37 Year
  Sex: Male
  Weight: 138 kg

DRUGS (2)
  1. LYRICA [Suspect]
     Active Substance: PREGABALIN
     Indication: FIBROMYALGIA
     Dosage: 150 MG, 3X/DAY
     Route: 048
     Dates: start: 2004
  2. HYDROCHLOROTHIAZIDE/TRIAMTERENE [Concomitant]
     Indication: HYPERTENSION
     Dosage: 37.5/25MG 1 DF, DAILY

REACTIONS (3)
  - Depression [Unknown]
  - Therapeutic response changed [Unknown]
  - Pain [Unknown]

NARRATIVE: CASE EVENT DATE: 20140626
